FAERS Safety Report 4822777-3 (Version None)
Quarter: 2005Q4

REPORT INFORMATION
  Report Type: 
  Country: None (occurrence: None)
  Receive Date: 20051104
  Receipt Date: 20051021
  Transmission Date: 20060501
  Serious: Yes (Hospitalization)
  Sender: FDA-Public Use
  Company Number: CIP05002522

PATIENT
  Age: 29 Year
  Sex: Female

DRUGS (9)
  1. DANTRIUM [Suspect]
     Dosage: 160 MG DAILY, IV NOS
     Route: 042
     Dates: start: 20051016
  2. FAMOTIDINE [Concomitant]
  3. PANSOPORIN (CEFOTIAM HYDROCHLORIDE) [Concomitant]
  4. VITAMEDIN CAPSULE (BENFOTIAMINE, CYANOCOBALAMIN, PYRIDOXINE HYDROCHLOR [Concomitant]
  5. VISCORIN (ASCORBIC ACID) [Concomitant]
  6. FLAVITAN (FLAVINE ADENINE DINUCLEOTIDE) [Concomitant]
  7. PARLODEL [Concomitant]
  8. DIAZEPAM [Concomitant]
  9. LEXOTAN (BROMAZEPAM) [Concomitant]

REACTIONS (1)
  - NEUROLEPTIC MALIGNANT SYNDROME [None]
